FAERS Safety Report 19776564 (Version 9)
Quarter: 2022Q4

REPORT INFORMATION
  Report Type: Spontaneous
  Country: CA (occurrence: CA)
  Receive Date: 20210901
  Receipt Date: 20221007
  Transmission Date: 20230113
  Serious: Yes (Other)
  Sender: FDA-Public Use
  Company Number: CA-TEVA-2021-CA-1946589

PATIENT
  Age: 19 Year
  Sex: Female

DRUGS (93)
  1. ACETAMINOPHEN [Suspect]
     Active Substance: ACETAMINOPHEN
     Indication: Complex regional pain syndrome
     Route: 065
  2. AMITRIPTYLINE [Suspect]
     Active Substance: AMITRIPTYLINE
     Indication: Complex regional pain syndrome
     Route: 065
  3. AMITRIPTYLINE [Suspect]
     Active Substance: AMITRIPTYLINE
     Route: 065
  4. AMITRIPTYLINE [Suspect]
     Active Substance: AMITRIPTYLINE
     Route: 065
  5. AMITRIPTYLINE [Suspect]
     Active Substance: AMITRIPTYLINE
     Route: 065
  6. AMITRIPTYLINE [Suspect]
     Active Substance: AMITRIPTYLINE
     Route: 065
  7. AMITRIPTYLINE [Suspect]
     Active Substance: AMITRIPTYLINE
     Route: 065
  8. AMITRIPTYLINE [Suspect]
     Active Substance: AMITRIPTYLINE
     Route: 065
  9. ASPIRIN [Suspect]
     Active Substance: ASPIRIN
     Indication: Complex regional pain syndrome
     Route: 065
  10. BUPROPION [Suspect]
     Active Substance: BUPROPION
     Indication: Complex regional pain syndrome
     Route: 065
  11. CARBAMAZEPINE [Suspect]
     Active Substance: CARBAMAZEPINE
     Indication: Complex regional pain syndrome
     Route: 065
  12. CELECOXIB [Suspect]
     Active Substance: CELECOXIB
     Indication: Complex regional pain syndrome
     Route: 065
  13. CITALOPRAM [Suspect]
     Active Substance: CITALOPRAM HYDROBROMIDE
     Indication: Complex regional pain syndrome
     Route: 065
  14. CLONIDINE [Suspect]
     Active Substance: CLONIDINE
     Indication: Complex regional pain syndrome
     Route: 065
  15. DEXTROMETHORPHAN HYDROBROMIDE [Suspect]
     Active Substance: DEXTROMETHORPHAN HYDROBROMIDE
     Indication: Complex regional pain syndrome
     Route: 065
  16. FENTANYL [Suspect]
     Active Substance: FENTANYL
     Indication: Complex regional pain syndrome
     Route: 062
  17. FENTANYL [Suspect]
     Active Substance: FENTANYL
     Route: 062
  18. FENTANYL [Suspect]
     Active Substance: FENTANYL
     Route: 062
  19. FENTANYL [Suspect]
     Active Substance: FENTANYL
     Route: 062
  20. GABAPENTIN [Suspect]
     Active Substance: GABAPENTIN
     Indication: Complex regional pain syndrome
     Route: 065
  21. HYDROMORPHONE [Suspect]
     Active Substance: HYDROMORPHONE
     Indication: Complex regional pain syndrome
     Route: 065
  22. IBUPROFEN [Suspect]
     Active Substance: IBUPROFEN
     Indication: Complex regional pain syndrome
     Route: 065
  23. PREGABALIN [Suspect]
     Active Substance: PREGABALIN
     Indication: Complex regional pain syndrome
     Dosage: 300 MILLIGRAM DAILY;
     Route: 065
  24. PREGABALIN [Suspect]
     Active Substance: PREGABALIN
     Dosage: 100 MILLIGRAM DAILY;
     Route: 065
  25. PREGABALIN [Suspect]
     Active Substance: PREGABALIN
     Route: 065
  26. PREGABALIN [Suspect]
     Active Substance: PREGABALIN
     Route: 065
  27. PREGABALIN [Suspect]
     Active Substance: PREGABALIN
     Route: 065
  28. PREGABALIN [Suspect]
     Active Substance: PREGABALIN
     Route: 065
  29. PREGABALIN [Suspect]
     Active Substance: PREGABALIN
     Route: 065
  30. PREGABALIN [Suspect]
     Active Substance: PREGABALIN
     Route: 065
  31. PREGABALIN [Suspect]
     Active Substance: PREGABALIN
     Dosage: 100 MILLIGRAM DAILY;
     Route: 065
  32. PREGABALIN [Suspect]
     Active Substance: PREGABALIN
     Dosage: 300 MILLIGRAM DAILY;
     Route: 065
  33. DULOXETINE [Suspect]
     Active Substance: DULOXETINE
     Indication: Complex regional pain syndrome
     Route: 065
  34. TOPIRAMATE [Suspect]
     Active Substance: TOPIRAMATE
     Indication: Complex regional pain syndrome
     Route: 065
  35. VENLAFAXINE [Suspect]
     Active Substance: VENLAFAXINE HYDROCHLORIDE
     Indication: Complex regional pain syndrome
     Route: 065
  36. NAPROXEN [Suspect]
     Active Substance: NAPROXEN
     Indication: Complex regional pain syndrome
     Route: 065
  37. MORPHINE [Suspect]
     Active Substance: MORPHINE
     Indication: Complex regional pain syndrome
     Route: 065
  38. MEXILETINE [Suspect]
     Active Substance: MEXILETINE
     Indication: Complex regional pain syndrome
     Route: 065
  39. MEMANTINE HYDROCHLORIDE [Suspect]
     Active Substance: MEMANTINE HYDROCHLORIDE
     Indication: Complex regional pain syndrome
     Route: 065
  40. EUCALYPTUS OIL [Suspect]
     Active Substance: EUCALYPTUS OIL
     Indication: Complex regional pain syndrome
     Route: 065
  41. CODEINE [Suspect]
     Active Substance: CODEINE
     Indication: Complex regional pain syndrome
     Route: 065
  42. DICLOFENAC [Suspect]
     Active Substance: DICLOFENAC
     Indication: Complex regional pain syndrome
     Route: 065
  43. DULOXETINE HYDROCHLORIDE [Suspect]
     Active Substance: DULOXETINE HYDROCHLORIDE
     Indication: Complex regional pain syndrome
     Route: 065
  44. TRAMADOL [Suspect]
     Active Substance: TRAMADOL
     Indication: Complex regional pain syndrome
     Route: 065
  45. CAPSICUM OLEORESIN [Suspect]
     Active Substance: CAPSICUM OLEORESIN
     Indication: Complex regional pain syndrome
     Route: 065
  46. HERBALS [Suspect]
     Active Substance: HERBALS
     Indication: Complex regional pain syndrome
     Route: 065
  47. DESIPRAMINE [Suspect]
     Active Substance: DESIPRAMINE
     Indication: Complex regional pain syndrome
     Route: 065
  48. DICLOFENAC [Suspect]
     Active Substance: DICLOFENAC
     Indication: Complex regional pain syndrome
     Route: 065
  49. CAPSAICIN [Suspect]
     Active Substance: CAPSAICIN
     Indication: Complex regional pain syndrome
     Route: 065
  50. EMLA [Suspect]
     Active Substance: LIDOCAINE\PRILOCAINE
     Indication: Complex regional pain syndrome
     Route: 065
  51. EMLA [Suspect]
     Active Substance: LIDOCAINE\PRILOCAINE
     Indication: Product used for unknown indication
  52. KETAMINE [Suspect]
     Active Substance: KETAMINE
     Indication: Complex regional pain syndrome
     Dosage: 50 MILLIGRAM DAILY;
     Route: 048
  53. KETAMINE [Suspect]
     Active Substance: KETAMINE
     Route: 048
  54. KETAMINE [Suspect]
     Active Substance: KETAMINE
     Route: 042
  55. KETAMINE [Suspect]
     Active Substance: KETAMINE
     Route: 048
  56. KETAMINE [Suspect]
     Active Substance: KETAMINE
     Dosage: 50 MILLIGRAM DAILY;
     Route: 048
  57. KETOROLAC [Suspect]
     Active Substance: KETOROLAC TROMETHAMINE
     Indication: Complex regional pain syndrome
     Route: 065
  58. LIDOCAINE [Suspect]
     Active Substance: LIDOCAINE
     Indication: Complex regional pain syndrome
     Route: 065
  59. LIDOCAINE [Suspect]
     Active Substance: LIDOCAINE
     Route: 065
  60. LIDOCAINE [Suspect]
     Active Substance: LIDOCAINE
     Route: 065
  61. LIDOCAINE [Suspect]
     Active Substance: LIDOCAINE
     Route: 065
  62. LIDOCAINE [Suspect]
     Active Substance: LIDOCAINE
     Route: 065
  63. LIDOCAINE [Suspect]
     Active Substance: LIDOCAINE
     Route: 065
  64. LIDOCAINE [Suspect]
     Active Substance: LIDOCAINE
     Route: 065
  65. LIDOCAINE [Suspect]
     Active Substance: LIDOCAINE
     Route: 061
  66. LIDOCAINE\PRILOCAINE [Suspect]
     Active Substance: LIDOCAINE\PRILOCAINE
     Indication: Complex regional pain syndrome
     Route: 065
  67. METHADONE HYDROCHLORIDE [Suspect]
     Active Substance: METHADONE HYDROCHLORIDE
     Indication: Complex regional pain syndrome
     Route: 065
  68. METHADOSE SUGAR-FREE [Suspect]
     Active Substance: METHADONE HYDROCHLORIDE
     Indication: Complex regional pain syndrome
     Route: 065
  69. LAVENDER OIL [Suspect]
     Active Substance: LAVENDER OIL
     Indication: Complex regional pain syndrome
     Route: 065
  70. NORTRIPTYLINE [Suspect]
     Active Substance: NORTRIPTYLINE
     Indication: Complex regional pain syndrome
     Route: 065
  71. NORTRIPTYLINE [Suspect]
     Active Substance: NORTRIPTYLINE
     Route: 065
  72. OXCARBAZEPINE [Suspect]
     Active Substance: OXCARBAZEPINE
     Indication: Complex regional pain syndrome
     Route: 065
  73. OXYCODONE [Suspect]
     Active Substance: OXYCODONE
     Indication: Complex regional pain syndrome
     Dosage: 240 MILLIGRAM DAILY;
     Route: 065
  74. OXYCODONE [Suspect]
     Active Substance: OXYCODONE
     Dosage: 240 MILLIGRAM DAILY;
     Route: 065
  75. OXYCODONE [Suspect]
     Active Substance: OXYCODONE
     Dosage: 30 MILLIGRAM DAILY;
     Route: 065
  76. OXYCODONE [Suspect]
     Active Substance: OXYCODONE
     Dosage: 120 MILLIGRAM DAILY;
     Route: 065
  77. OXYCODONE [Suspect]
     Active Substance: OXYCODONE
     Route: 065
  78. OXYCODONE [Suspect]
     Active Substance: OXYCODONE
     Route: 065
  79. OXYCODONE [Suspect]
     Active Substance: OXYCODONE
     Route: 065
  80. OXYCODONE [Suspect]
     Active Substance: OXYCODONE
     Route: 065
  81. OXYCODONE [Suspect]
     Active Substance: OXYCODONE
     Route: 065
  82. OXYCODONE [Suspect]
     Active Substance: OXYCODONE
     Route: 065
  83. OXYCODONE [Suspect]
     Active Substance: OXYCODONE
     Dosage: 240 MILLIGRAM DAILY;
     Route: 065
  84. ROSEMARY OIL [Suspect]
     Active Substance: ROSEMARY OIL
     Indication: Complex regional pain syndrome
     Route: 065
  85. HERBALS [Suspect]
     Active Substance: HERBALS
     Indication: Complex regional pain syndrome
     Route: 065
  86. TRAMADOL HYDROCHLORIDE [Suspect]
     Active Substance: TRAMADOL HYDROCHLORIDE
     Indication: Complex regional pain syndrome
     Route: 065
  87. VENLAFAXINE [Suspect]
     Active Substance: VENLAFAXINE HYDROCHLORIDE
     Indication: Complex regional pain syndrome
     Route: 065
  88. CAPSICUM ANNUUM [Suspect]
     Active Substance: CAPSICUM
     Indication: Complex regional pain syndrome
     Route: 065
  89. DICLOFENAC SODIUM [Suspect]
     Active Substance: DICLOFENAC SODIUM
     Indication: Product used for unknown indication
     Route: 065
  90. CAYENNE PEPPER [Suspect]
     Active Substance: CAPSICUM
     Indication: Product used for unknown indication
     Route: 065
  91. PROPOXYPHENE HYDROCHLORIDE [Suspect]
     Active Substance: PROPOXYPHENE HYDROCHLORIDE
     Indication: Complex regional pain syndrome
     Route: 065
  92. NORTRIPTYLINE [Suspect]
     Active Substance: NORTRIPTYLINE
     Indication: Complex regional pain syndrome
     Route: 065
  93. EUCALYPTUS OIL [Suspect]
     Active Substance: EUCALYPTUS OIL
     Indication: Complex regional pain syndrome
     Route: 065

REACTIONS (3)
  - Immune thrombocytopenia [Unknown]
  - Weight increased [Unknown]
  - Therapy non-responder [Unknown]
